FAERS Safety Report 11230781 (Version 4)
Quarter: 2015Q3

REPORT INFORMATION
  Report Type: Spontaneous
  Country: CA (occurrence: None)
  Receive Date: 20150629
  Receipt Date: 20150825
  Transmission Date: 20151125
  Serious: Yes (Other)
  Sender: FDA-Public Use
  Company Number: 2015FE02091

PATIENT
  Age: 70 Year
  Sex: Male
  Weight: 58 kg

DRUGS (23)
  1. ATORVASTATIN (ATORVASTATIN) [Concomitant]
     Active Substance: ATORVASTATIN
  2. CALCIUM (CALCIUM) [Concomitant]
     Active Substance: CALCIUM
  3. XTANDI [Concomitant]
     Active Substance: ENZALUTAMIDE
  4. DEGARELIX (DEGARELIX) POWDER AND SOLVENT FOR SOLUTION FOR INJECTION [Suspect]
     Active Substance: DEGARELIX
     Indication: PROSTATE CANCER
     Route: 058
     Dates: start: 20140203, end: 20150715
  5. CALCIUM (CALCIUM) [Concomitant]
     Active Substance: CALCIUM
  6. VITAMIN C /00008001/  (ASCORBIC ACID) [Concomitant]
  7. VITAMIN B (VITAMIN B COMPLEX) [Concomitant]
  8. VITAMIN D /00104901/ (ERGOCALCIFEROL) [Concomitant]
  9. VITAMIN E  /00110501/  (TOCOPHEROL) [Concomitant]
  10. DILAUDID [Concomitant]
     Active Substance: HYDROMORPHONE HYDROCHLORIDE
  11. PREDNISONE (PREDNISONE) [Concomitant]
     Active Substance: PREDNISONE
  12. COVERSYL /00790702/ (PERINDOPRIL ERBUMINE) [Concomitant]
  13. ONDANSETRON. [Concomitant]
     Active Substance: ONDANSETRON
  14. RANITIDINE [Concomitant]
     Active Substance: RANITIDINE\RANITIDINE HYDROCHLORIDE
  15. CHROMIUM (CHROMIUM) [Concomitant]
  16. LANTUS [Concomitant]
     Active Substance: INSULIN GLARGINE
  17. ZYTIGA (ABIRATERONE ACETATE) [Concomitant]
  18. METFORMIN [Concomitant]
     Active Substance: METFORMIN HYDROCHLORIDE
  19. AMLODIPINE [Concomitant]
     Active Substance: AMLODIPINE BESYLATE
  20. DIAMICRON (GLICLAZIDE) [Concomitant]
     Active Substance: GLICLAZIDE
  21. INDAPAMIDE (INDAPAMIDE) [Concomitant]
     Active Substance: INDAPAMIDE
  22. OMEGA /00661201/ (OMEPRAZOLE) [Concomitant]
  23. HYDROMORPHONE (HYDROMORPHONE) [Concomitant]
     Active Substance: HYDROMORPHONE

REACTIONS (8)
  - Prostatic specific antigen increased [None]
  - Dyspnoea [None]
  - Fatigue [None]
  - Nausea [None]
  - Injection site mass [None]
  - Injection site erythema [None]
  - Decreased appetite [None]
  - Haemoglobin decreased [None]
